FAERS Safety Report 13235703 (Version 1)
Quarter: 2017Q1

REPORT INFORMATION
  Report Type: Report from Study
  Country: US (occurrence: US)
  Receive Date: 20170215
  Receipt Date: 20170215
  Transmission Date: 20170428
  Serious: No
  Sender: FDA-Public Use
  Company Number: US-AMAG PHARMACEUTICALS, INC.-AMAG201601213

PATIENT

DRUGS (5)
  1. ZOLOFT [Concomitant]
     Active Substance: SERTRALINE HYDROCHLORIDE
     Indication: PRODUCT USED FOR UNKNOWN INDICATION
  2. MAKENA [Suspect]
     Active Substance: HYDROXYPROGESTERONE CAPROATE
     Indication: PREMATURE DELIVERY
     Dosage: 250 UNK, WEEKLY
     Route: 030
     Dates: start: 20160601
  3. PRENATAL VITAMINS [Suspect]
     Active Substance: VITAMINS
     Indication: PREGNANCY
     Dosage: UNK
     Route: 048
  4. LATUDA [Concomitant]
     Active Substance: LURASIDONE HYDROCHLORIDE
     Indication: PRODUCT USED FOR UNKNOWN INDICATION
  5. LOVENOX [Concomitant]
     Active Substance: ENOXAPARIN SODIUM
     Indication: PRODUCT USED FOR UNKNOWN INDICATION

REACTIONS (7)
  - Injection site urticaria [Not Recovered/Not Resolved]
  - Swelling [Unknown]
  - Pain [Unknown]
  - Weight increased [Unknown]
  - Feeling hot [Unknown]
  - Hypersensitivity [Unknown]
  - Drug administered at inappropriate site [Unknown]
